FAERS Safety Report 6644369-6 (Version None)
Quarter: 2010Q1

REPORT INFORMATION
  Report Type: 
  Country: None (occurrence: None)
  Receive Date: 20100319
  Receipt Date: 20100319
  Transmission Date: 20100710
  Serious: Yes (Other)
  Sender: FDA-Public Use
  Company Number: None

PATIENT
  Sex: Male
  Weight: 43 kg

DRUGS (2)
  1. ADVICOR [Suspect]
     Indication: ATTENTION DEFICIT/HYPERACTIVITY DISORDER
     Dates: start: 20100128, end: 20100304
  2. TRASICOR [Suspect]
     Indication: OPPOSITIONAL DEFIANT DISORDER
     Dates: start: 20100225, end: 20100304

REACTIONS (2)
  - FATIGUE [None]
  - INSOMNIA [None]
